FAERS Safety Report 16687801 (Version 4)
Quarter: 2022Q1

REPORT INFORMATION
  Report Type: Spontaneous
  Country: US (occurrence: US)
  Receive Date: 20190809
  Receipt Date: 20220314
  Transmission Date: 20220423
  Serious: No
  Sender: FDA-Public Use
  Company Number: US-PFIZER INC-2019337715

PATIENT
  Age: 58 Year
  Sex: Female

DRUGS (1)
  1. XELJANZ XR [Suspect]
     Active Substance: TOFACITINIB CITRATE
     Indication: Rheumatoid arthritis
     Dosage: 11 MG, 1X/DAY
     Route: 048
     Dates: start: 2018

REACTIONS (9)
  - Cough [Unknown]
  - Nasopharyngitis [Recovering/Resolving]
  - Throat irritation [Unknown]
  - Headache [Unknown]
  - Nasal congestion [Recovering/Resolving]
  - Sneezing [Unknown]
  - Lacrimation increased [Unknown]
  - Decreased immune responsiveness [Unknown]
  - Product prescribing error [Unknown]

NARRATIVE: CASE EVENT DATE: 20190731
